FAERS Safety Report 9494779 (Version 1)
Quarter: 2013Q3

REPORT INFORMATION
  Report Type: Report from Study
  Country: GB (occurrence: GB)
  Receive Date: 20130903
  Receipt Date: 20130903
  Transmission Date: 20140515
  Serious: Yes (Hospitalization)
  Sender: FDA-Public Use
  Company Number: GB-JNJFOC-20130812999

PATIENT
  Age: 47 Year
  Sex: Female
  Weight: 80 kg

DRUGS (9)
  1. STELARA [Suspect]
     Indication: PSORIASIS
     Route: 058
     Dates: start: 20121029
  2. PARACETAMOL [Suspect]
     Route: 065
  3. PARACETAMOL [Suspect]
     Indication: PAIN
     Route: 065
  4. RAMIPRIL [Concomitant]
     Route: 065
     Dates: start: 20121011
  5. ATENOLOL [Concomitant]
     Route: 065
     Dates: start: 20121114
  6. NORETHISTERONE [Concomitant]
     Route: 065
     Dates: start: 20080615
  7. METFORMIN [Concomitant]
     Route: 065
     Dates: start: 20110615
  8. CO-AMOXICLAV [Concomitant]
     Route: 065
     Dates: start: 20130731, end: 20130807
  9. TETANUS [Concomitant]
     Route: 065
     Dates: start: 20130731, end: 20130731

REACTIONS (3)
  - Accidental overdose [Recovered/Resolved]
  - Gamma-glutamyltransferase increased [Unknown]
  - Pain [Unknown]
